FAERS Safety Report 7109060-0 (Version None)
Quarter: 2010Q4

REPORT INFORMATION
  Report Type: 
  Country: None (occurrence: None)
  Receive Date: 20101117
  Receipt Date: 20101108
  Transmission Date: 20110411
  Serious: Yes (Hospitalization)
  Sender: FDA-Public Use
  Company Number: US-US-EMD SERONO, INC.-7026528

PATIENT
  Sex: Female

DRUGS (7)
  1. REBIF [Suspect]
     Indication: MULTIPLE SCLEROSIS
     Route: 058
     Dates: start: 20100916, end: 20101101
  2. SYNTHROID [Concomitant]
     Indication: HYPOTHYROIDISM
  3. PROZAC [Concomitant]
     Indication: DEPRESSION
  4. ATENOLOL [Concomitant]
     Indication: PALPITATIONS
  5. OMEPRAZOLE [Concomitant]
     Indication: GASTROOESOPHAGEAL REFLUX DISEASE
  6. AMBIEN [Concomitant]
     Indication: INSOMNIA
  7. LORAZEPAM [Concomitant]
     Indication: ANXIETY

REACTIONS (4)
  - FALL [None]
  - MUSCLE TWITCHING [None]
  - UPPER LIMB FRACTURE [None]
  - WRIST FRACTURE [None]
